FAERS Safety Report 6175439-7 (Version None)
Quarter: 2009Q2

REPORT INFORMATION
  Report Type: 
  Country: None (occurrence: None)
  Receive Date: 20090429
  Receipt Date: 20090416
  Transmission Date: 20091009
  Serious: Yes (Hospitalization, Other)
  Sender: FDA-Public Use
  Company Number: 2009EN000138

PATIENT
  Age: 35 Year
  Sex: Male
  Weight: 65.3 kg

DRUGS (17)
  1. ABELCET [Suspect]
     Indication: MENINGITIS
     Dosage: 340 MG; QD; IV
     Route: 042
     Dates: start: 20090414
  2. DILANTIN [Suspect]
     Indication: CONVULSION PROPHYLAXIS
     Dosage: 300 MG; QD; PO
     Route: 048
     Dates: start: 20090410, end: 20090416
  3. DEPAKOTE [Suspect]
     Indication: CONVULSION PROPHYLAXIS
     Dosage: 250 MG; TID; PO
     Route: 048
     Dates: start: 20090414, end: 20090416
  4. VERSED [Concomitant]
  5. PROPOFOL [Concomitant]
  6. TYLENOL [Concomitant]
  7. ZITHROMAX [Concomitant]
  8. ATRIPLA [Concomitant]
  9. ENALAPRILAT [Concomitant]
  10. FLUCYTOSINE [Concomitant]
  11. LOPRESSOR [Concomitant]
  12. ATIVAN [Concomitant]
  13. ZOFRAN [Concomitant]
  14. PERCOCET [Concomitant]
  15. POTASSIUM CHLORIDE [Concomitant]
  16. BACTRIM DS [Concomitant]
  17. AMBIEN [Concomitant]

REACTIONS (1)
  - RHABDOMYOLYSIS [None]
